FAERS Safety Report 4413377-8 (Version None)
Quarter: 2004Q3

REPORT INFORMATION
  Report Type: 
  Country: None (occurrence: None)
  Receive Date: 20040728
  Receipt Date: 20040714
  Transmission Date: 20050211
  Serious: Yes (Hospitalization)
  Sender: FDA-Public Use
  Company Number: US012950

PATIENT
  Age: 59 Year
  Sex: Female
  Weight: 68.04 kg

DRUGS (7)
  1. GABITRIL [Suspect]
     Indication: ANXIETY
     Dosage: 4 MG QHS ORAL
     Route: 048
     Dates: start: 20040114, end: 20040209
  2. GABITRIL [Suspect]
     Indication: ANXIETY
     Dosage: 32 MG QD ORAL
     Route: 048
     Dates: start: 20040210, end: 20040220
  3. VICODIN [Suspect]
     Dosage: 2 TABS ORAL
     Route: 048
  4. FOSAMAX [Concomitant]
  5. LEXAPRO [Concomitant]
  6. ATACAND [Concomitant]
  7. METOPROLOL [Concomitant]

REACTIONS (15)
  - ABNORMAL BEHAVIOUR [None]
  - AGGRESSION [None]
  - AMNESIA [None]
  - COGNITIVE DISORDER [None]
  - COMMUNICATION DISORDER [None]
  - CONFUSIONAL STATE [None]
  - CONVULSION [None]
  - DISORIENTATION [None]
  - ELECTROCARDIOGRAM ST-T CHANGE [None]
  - FALL [None]
  - LOSS OF CONSCIOUSNESS [None]
  - THERAPY NON-RESPONDER [None]
  - TRANSIENT ISCHAEMIC ATTACK [None]
  - URINARY INCONTINENCE [None]
  - WHITE BLOOD CELL COUNT INCREASED [None]
